FAERS Safety Report 18007338 (Version 2)
Quarter: 2020Q3

REPORT INFORMATION
  Report Type: Spontaneous
  Country: ES (occurrence: ES)
  Receive Date: 20200710
  Receipt Date: 20200721
  Transmission Date: 20201103
  Serious: Yes (Other)
  Sender: FDA-Public Use
  Company Number: ES-ASTRAZENECA-2020SE85459

PATIENT
  Age: 83 Year
  Sex: Male

DRUGS (10)
  1. METFORMIN [Concomitant]
     Active Substance: METFORMIN HYDROCHLORIDE
  2. SIMVASTATIN. [Concomitant]
     Active Substance: SIMVASTATIN
  3. HYDROCHLOROTHIAZIDE. [Suspect]
     Active Substance: HYDROCHLOROTHIAZIDE
     Route: 065
  4. ESCITALOPRAM [Suspect]
     Active Substance: ESCITALOPRAM OXALATE
     Route: 065
  5. RILUZOLE. [Concomitant]
     Active Substance: RILUZOLE
     Indication: AMYOTROPHIC LATERAL SCLEROSIS
  6. NIFEDIPINE. [Concomitant]
     Active Substance: NIFEDIPINE
  7. LORAZEPAM. [Concomitant]
     Active Substance: LORAZEPAM
  8. OMEPRAZOLE. [Suspect]
     Active Substance: OMEPRAZOLE
     Route: 048
  9. GLICLAZIDE [Concomitant]
     Active Substance: GLICLAZIDE
  10. IRBESARTAN. [Concomitant]
     Active Substance: IRBESARTAN

REACTIONS (2)
  - Hyponatraemia [Recovered/Resolved]
  - Inappropriate antidiuretic hormone secretion [Unknown]
